FAERS Safety Report 8141083-5 (Version None)
Quarter: 2012Q1

REPORT INFORMATION
  Report Type: 
  Country: None (occurrence: None)
  Receive Date: 20120216
  Receipt Date: 20120202
  Transmission Date: 20120608
  Serious: Yes (Death, Other)
  Sender: FDA-Public Use
  Company Number: US-UCBSA-051032

PATIENT
  Sex: Female

DRUGS (1)
  1. CIMZIA [Suspect]
     Route: 064

REACTIONS (4)
  - BRAIN INJURY [None]
  - PNEUMOPERITONEUM [None]
  - BRADYCARDIA FOETAL [None]
  - FOETAL EXPOSURE DURING PREGNANCY [None]
